FAERS Safety Report 9056146 (Version 1)
Quarter: 2013Q1

REPORT INFORMATION
  Report Type: Spontaneous
  Country: US (occurrence: US)
  Receive Date: 20130205
  Receipt Date: 20130205
  Transmission Date: 20140127
  Serious: Yes (Hospitalization, Other)
  Sender: FDA-Public Use
  Company Number: US-BRISTOL-MYERS SQUIBB COMPANY-17316852

PATIENT
  Age: 63 Year
  Sex: Male
  Weight: 92.97 kg

DRUGS (2)
  1. ORENCIA FOR INJ [Suspect]
     Dosage: ORENCIA IV INFUSION,LAST INF:26MAY2010?LAST INJECTION;24JAN13?NO OF INJ:4
     Route: 042
  2. ABATACEPT SUBQ INJECTION 125MG/ML [Suspect]
     Route: 058

REACTIONS (3)
  - Influenza like illness [Unknown]
  - Loss of consciousness [Recovered/Resolved]
  - Hair colour changes [Not Recovered/Not Resolved]
